FAERS Safety Report 21284456 (Version 2)
Quarter: 2022Q3

REPORT INFORMATION
  Report Type: Report from Study
  Country: CA (occurrence: CA)
  Receive Date: 20220902
  Receipt Date: 20220905
  Transmission Date: 20221027
  Serious: Yes (Other)
  Sender: FDA-Public Use
  Company Number: CA-JNJFOC-20220863792

PATIENT
  Age: 15 Year
  Sex: Female
  Weight: 54.480 kg

DRUGS (1)
  1. REMICADE [Suspect]
     Active Substance: INFLIXIMAB
     Indication: Crohn^s disease
     Route: 041

REACTIONS (7)
  - Infusion related reaction [Recovered/Resolved]
  - Dizziness [Recovered/Resolved]
  - Nausea [Recovered/Resolved]
  - Flushing [Recovered/Resolved]
  - Vomiting [Recovered/Resolved]
  - Nervousness [Unknown]
  - Discomfort [Unknown]

NARRATIVE: CASE EVENT DATE: 20220829
